FAERS Safety Report 5274550-2 (Version None)
Quarter: 2007Q1

REPORT INFORMATION
  Report Type: 
  Country: None (occurrence: None)
  Receive Date: 20070320
  Receipt Date: 20070306
  Transmission Date: 20070707
  Serious: Yes (Hospitalization)
  Sender: FDA-Public Use
  Company Number: 2007AL000925

PATIENT
  Age: 49 Year
  Sex: Female

DRUGS (5)
  1. METFORMIN HYDROCHLORIDE [Suspect]
     Indication: DIABETES MELLITUS NON-INSULIN-DEPENDENT
     Dosage: 6 GM; QD; PO
     Route: 048
  2. GLIBENCLAMIDE [Concomitant]
  3. LOSARTAN POSTASSIUM [Concomitant]
  4. HYDROCHLOROTHIAZIDE [Concomitant]
  5. ALPHA-BLOCKER (UNSPECIFIED) [Concomitant]

REACTIONS (13)
  - ANION GAP INCREASED [None]
  - CIRCULATORY COLLAPSE [None]
  - DRUG LEVEL ABOVE THERAPEUTIC [None]
  - GASTROENTERITIS [None]
  - HAEMODIALYSIS [None]
  - HYPERVENTILATION [None]
  - HYPOGLYCAEMIA [None]
  - HYPOTHERMIA [None]
  - LOSS OF CONSCIOUSNESS [None]
  - METABOLIC ACIDOSIS [None]
  - MYDRIASIS [None]
  - ORAL INTAKE REDUCED [None]
  - PUPILLARY REFLEX IMPAIRED [None]
